FAERS Safety Report 25487685 (Version 3)
Quarter: 2025Q4

REPORT INFORMATION
  Report Type: Spontaneous
  Country: JP (occurrence: JP)
  Receive Date: 20250627
  Receipt Date: 20251017
  Transmission Date: 20260117
  Serious: Yes (Other)
  Sender: MERCK SHARP & DOHME LLC
  Company Number: JP-009507513-2298928

PATIENT
  Age: 60 Year
  Sex: Female

DRUGS (4)
  1. PREVYMIS [Suspect]
     Active Substance: LETERMOVIR
     Indication: Antiviral prophylaxis
     Dosage: 480MG QD;
     Route: 048
     Dates: start: 202412, end: 202503
  2. TACROLIMUS [Suspect]
     Active Substance: TACROLIMUS
     Dates: start: 202412
  3. MYCOPHENOLATE MOFETIL [Concomitant]
     Active Substance: MYCOPHENOLATE MOFETIL
  4. EVEROLIMUS [Suspect]
     Active Substance: EVEROLIMUS
     Dates: start: 202412

REACTIONS (2)
  - Renal impairment [Recovered/Resolved]
  - Labelled drug-drug interaction issue [Unknown]

NARRATIVE: CASE EVENT DATE: 20241201
